FAERS Safety Report 11647873 (Version 1)
Quarter: 2015Q4

REPORT INFORMATION
  Report Type: Spontaneous
  Country: CA (occurrence: CA)
  Receive Date: 20151021
  Receipt Date: 20151021
  Transmission Date: 20160304
  Serious: Yes (Other)
  Sender: FDA-Public Use
  Company Number: CA-BEH-2015054790

PATIENT
  Age: 58 Year
  Sex: Female
  Weight: 61.4 kg

DRUGS (1)
  1. PRIVIGEN [Suspect]
     Active Substance: HUMAN IMMUNOGLOBULIN G
     Indication: DERMATOMYOSITIS
     Dosage: INFUSION RATE: 175ML/HR, APPROX 240ML INFUSED.
     Route: 042
     Dates: start: 20151008, end: 20151008

REACTIONS (5)
  - Body temperature increased [Recovered/Resolved]
  - Chills [Recovered/Resolved]
  - Product use issue [None]
  - Erythema [Recovered/Resolved]
  - Incorrect drug administration rate [Recovered/Resolved]

NARRATIVE: CASE EVENT DATE: 20151008
